FAERS Safety Report 13992102 (Version 2)
Quarter: 2017Q4

REPORT INFORMATION
  Report Type: Spontaneous
  Country: US (occurrence: US)
  Receive Date: 20170920
  Receipt Date: 20171123
  Transmission Date: 20180321
  Serious: No
  Sender: FDA-Public Use
  Company Number: US-JNJFOC-20170803239

PATIENT
  Sex: Female
  Weight: 73.48 kg

DRUGS (5)
  1. TOPAMAX [Suspect]
     Active Substance: TOPIRAMATE
     Indication: MIGRAINE
     Route: 048
     Dates: start: 201611, end: 201612
  2. TOPAMAX [Suspect]
     Active Substance: TOPIRAMATE
     Indication: MIGRAINE
     Dosage: 100 MG IN THE MORNING AND 100 MG AT NIGHT
     Route: 048
     Dates: start: 2017
  3. TOPAMAX [Suspect]
     Active Substance: TOPIRAMATE
     Indication: MIGRAINE
     Dosage: 50 MG IN THE MORNING AND 50 MG AT NIGHT
     Route: 048
     Dates: start: 2017, end: 2017
  4. TOPAMAX [Suspect]
     Active Substance: TOPIRAMATE
     Indication: MIGRAINE
     Dosage: 50 MG IN THE MORNING AND 100 MG AT NIGHT
     Route: 048
     Dates: start: 2017, end: 2017
  5. TOPAMAX [Suspect]
     Active Substance: TOPIRAMATE
     Indication: MIGRAINE
     Dosage: 25 MG IN THE MORNING AND 50 MG IN THE NIGHT
     Route: 048
     Dates: start: 2017, end: 2017

REACTIONS (2)
  - Migraine [Not Recovered/Not Resolved]
  - Alopecia [Not Recovered/Not Resolved]

NARRATIVE: CASE EVENT DATE: 2017
